FAERS Safety Report 14819761 (Version 2)
Quarter: 2019Q4

REPORT INFORMATION
  Report Type: Report from Study
  Country: US (occurrence: US)
  Receive Date: 20180427
  Receipt Date: 20191024
  Transmission Date: 20200122
  Serious: No
  Sender: FDA-Public Use
  Company Number: US-ROCHE-2112669

PATIENT
  Age: 31 Year
  Sex: Female

DRUGS (5)
  1. OCREVUS [Suspect]
     Active Substance: OCRELIZUMAB
     Indication: RELAPSING MULTIPLE SCLEROSIS
     Dosage: 300 MG ON DAY (NOT REPORTED) AND DAY 15.?ON 16/APR/2018, SHE RECEIVED INFUSION.
     Route: 042
     Dates: start: 20180402
  2. TYLENOL [Concomitant]
     Active Substance: ACETAMINOPHEN
  3. OCREVUS [Suspect]
     Active Substance: OCRELIZUMAB
     Indication: RELAPSING MULTIPLE SCLEROSIS
     Dosage: NEXT DOSE: 03/OCT/2019
     Route: 042
  4. JUNEL [Concomitant]
     Active Substance: ETHINYL ESTRADIOL\NORETHINDRONE ACETATE
     Indication: CONTRACEPTION
     Route: 065
  5. PREDNISONE. [Concomitant]
     Active Substance: PREDNISONE

REACTIONS (6)
  - Rhinorrhoea [Unknown]
  - Ear pruritus [Recovered/Resolved]
  - Ear pain [Recovered/Resolved]
  - Nasopharyngitis [Unknown]
  - Throat irritation [Recovered/Resolved]
  - Oropharyngeal pain [Unknown]

NARRATIVE: CASE EVENT DATE: 20191003
